FAERS Safety Report 7704423-4 (Version None)
Quarter: 2011Q3

REPORT INFORMATION
  Report Type: 
  Country: None (occurrence: None)
  Receive Date: 20110823
  Receipt Date: 20110818
  Transmission Date: 20111222
  Serious: Yes (Other)
  Sender: FDA-Public Use
  Company Number: US-BRISTOL-MYERS SQUIBB COMPANY-15962244

PATIENT
  Age: 7 Year
  Sex: Male
  Weight: 33 kg

DRUGS (12)
  1. PREDNISONE TAB [Suspect]
     Indication: PRECURSOR B-LYMPHOBLASTIC LYMPHOMA
     Dosage: LAST DOSE ON 20MAR11
     Route: 048
     Dates: start: 20110307
  2. VINCRISTINE SULFATE [Suspect]
     Indication: PRECURSOR B-LYMPHOBLASTIC LYMPHOMA
     Dosage: LAST DOSE ON 09MAY11
     Route: 042
     Dates: start: 20110307
  3. IFOSFAMIDE [Suspect]
     Indication: PRECURSOR B-LYMPHOBLASTIC LYMPHOMA
     Dosage: LAST DOSE ON 01APR11
     Route: 042
     Dates: start: 20110307
  4. CYCLOPHOSPHAMIDE [Suspect]
     Indication: PRECURSOR B-LYMPHOBLASTIC LYMPHOMA
     Dosage: LAST DOSE ON 13MAY11
     Route: 042
     Dates: start: 20110307
  5. DAUNORUBICIN HCL [Suspect]
     Indication: PRECURSOR B-LYMPHOBLASTIC LYMPHOMA
     Dosage: LAST DOSE ON 10MAY11
     Route: 042
     Dates: start: 20110307
  6. HYDROCORTISONE [Suspect]
     Indication: PRECURSOR B-LYMPHOBLASTIC LYMPHOMA
     Dosage: LAST DOSE ON 09MAY11
     Dates: start: 20110307
  7. CYTARABINE [Suspect]
     Indication: PRECURSOR B-LYMPHOBLASTIC LYMPHOMA
     Dosage: LAST DOSE ON 09MAY11
     Route: 042
     Dates: start: 20110307
  8. SPRYCEL [Suspect]
     Indication: PRECURSOR B-LYMPHOBLASTIC LYMPHOMA
     Dosage: 15MAY11
     Route: 048
     Dates: start: 20110307
  9. DEXAMETHASONE [Suspect]
     Indication: PRECURSOR B-LYMPHOBLASTIC LYMPHOMA
     Dosage: LAST DOSE ON 16MAY11
     Route: 048
     Dates: start: 20110307
  10. ETOPOSIDE [Suspect]
     Indication: PRECURSOR B-LYMPHOBLASTIC LYMPHOMA
     Dosage: LAST DOSE ON 01APR11
     Route: 042
     Dates: start: 20110307
  11. METHOTREXATE [Suspect]
     Indication: PRECURSOR B-LYMPHOBLASTIC LYMPHOMA
     Dosage: LAST DOSE ON 09MAY11,ORAL
     Route: 042
     Dates: start: 20110307
  12. ONCASPAR [Suspect]
     Indication: PRECURSOR B-LYMPHOBLASTIC LYMPHOMA
     Dosage: LAST DOSE ON 12MAY11
     Route: 030
     Dates: start: 20110307

REACTIONS (3)
  - INFUSION RELATED REACTION [None]
  - ALANINE AMINOTRANSFERASE INCREASED [None]
  - HYPOKALAEMIA [None]
